FAERS Safety Report 8145888-6 (Version None)
Quarter: 2012Q1

REPORT INFORMATION
  Report Type: 
  Country: None (occurrence: None)
  Receive Date: 20120217
  Receipt Date: 20111018
  Transmission Date: 20120608
  Serious: No
  Sender: FDA-Public Use
  Company Number: US-ABBOTT-11P-163-0865714-00

PATIENT
  Sex: Female
  Weight: 75.364 kg

DRUGS (5)
  1. SINGULAIR [Concomitant]
     Indication: PRODUCT USED FOR UNKNOWN INDICATION
  2. SIMCOR [Suspect]
     Indication: LOW DENSITY LIPOPROTEIN INCREASED
  3. ASPIRIN [Concomitant]
     Indication: PRODUCT USED FOR UNKNOWN INDICATION
  4. PAXIL [Concomitant]
     Indication: PRODUCT USED FOR UNKNOWN INDICATION
  5. SIMCOR [Suspect]
     Indication: BLOOD CHOLESTEROL INCREASED
     Dosage: 500/40 MG AT BEDTIME
     Dates: start: 20111014, end: 20111018

REACTIONS (5)
  - PARAESTHESIA [None]
  - GENERALISED ERYTHEMA [None]
  - SKIN BURNING SENSATION [None]
  - HYPERTENSION [None]
  - DYSPNOEA [None]
